FAERS Safety Report 23663186 (Version 1)
Quarter: 2024Q1

REPORT INFORMATION
  Report Type: Spontaneous
  Country: CN (occurrence: CN)
  Receive Date: 20240322
  Receipt Date: 20240322
  Transmission Date: 20240410
  Serious: Yes (Other)
  Sender: FDA-Public Use
  Company Number: None

PATIENT
  Age: 54 Year
  Sex: Male
  Weight: 65 kg

DRUGS (1)
  1. MANNITOL [Suspect]
     Active Substance: MANNITOL
     Indication: Dehydration
     Dosage: (DOSAGE FORM: INJECTION) 250 ML (MILLILITRE) ONCE A DAY
     Route: 041
     Dates: start: 20240305, end: 20240305

REACTIONS (4)
  - Conjunctival oedema [Recovering/Resolving]
  - Eye oedema [Recovering/Resolving]
  - Blood pressure abnormal [Unknown]
  - Pruritus [Recovered/Resolved]

NARRATIVE: CASE EVENT DATE: 20240305
